FAERS Safety Report 15427981 (Version 2)
Quarter: 2018Q4

REPORT INFORMATION
  Report Type: Report from Study
  Country: US (occurrence: US)
  Receive Date: 20180926
  Receipt Date: 20181206
  Transmission Date: 20190204
  Serious: Yes (Hospitalization, Other)
  Sender: FDA-Public Use
  Company Number: US-BRISTOL-MYERS SQUIBB COMPANY-BMS-2018-087288

PATIENT
  Age: 63 Year
  Sex: Female
  Weight: 86.8 kg

DRUGS (3)
  1. NIVOLUMAB [Suspect]
     Active Substance: NIVOLUMAB
     Indication: SMALL CELL LUNG CANCER
     Dosage: 360 MG, UNK
     Route: 042
     Dates: start: 20180702
  2. CARBOPLATIN. [Suspect]
     Active Substance: CARBOPLATIN
     Indication: SMALL CELL LUNG CANCER
     Dosage: 1 DF, UNK
     Route: 042
     Dates: start: 20180702
  3. ETOPOSIDE. [Suspect]
     Active Substance: ETOPOSIDE
     Indication: SMALL CELL LUNG CANCER
     Dosage: 100 MG/M2, UNK
     Route: 042
     Dates: start: 20180702

REACTIONS (14)
  - Neutrophil count decreased [Recovered/Resolved]
  - Hyponatraemia [Recovered/Resolved]
  - Hypoxia [Recovered/Resolved]
  - Hyperglycaemia [Recovered/Resolved]
  - Dyspnoea [Recovered/Resolved]
  - Sinus tachycardia [Recovered/Resolved]
  - Platelet count decreased [Recovered/Resolved]
  - Hypomagnesaemia [Recovered/Resolved]
  - Febrile neutropenia [Recovered/Resolved]
  - Productive cough [Recovered/Resolved]
  - Sepsis [Recovered/Resolved]
  - Nausea [Recovered/Resolved]
  - Vomiting [Recovered/Resolved]
  - Anaemia [Recovered/Resolved]

NARRATIVE: CASE EVENT DATE: 20180918
